FAERS Safety Report 14998759 (Version 1)
Quarter: 2018Q2

REPORT INFORMATION
  Report Type: Spontaneous
  Country: BR (occurrence: BR)
  Receive Date: 20180612
  Receipt Date: 20180612
  Transmission Date: 20180711
  Serious: Yes (Hospitalization)
  Sender: FDA-Public Use
  Company Number: BR-ALVOGEN-2018-ALVOGEN-096366

PATIENT
  Age: 48 Year
  Sex: Female

DRUGS (4)
  1. VERTIX [Concomitant]
     Indication: LABYRINTHITIS
     Dosage: ONLY ON CRISIS AS REQUIRED
  2. BETADINE [Concomitant]
     Active Substance: POVIDONE-IODINE
     Indication: LABYRINTHITIS
     Dosage: ONLY ON CRISIS AS REQUIRED
  3. TENORETIC [Suspect]
     Active Substance: ATENOLOL\CHLORTHALIDONE
     Indication: HYPERTENSION
     Dosage: 50/12.5 MG EVERY MORNING
     Route: 048
     Dates: start: 2003
  4. CORUS [Concomitant]
     Active Substance: LOSARTAN POTASSIUM
     Indication: HYPERTENSION
     Route: 048

REACTIONS (1)
  - Breast mass [Not Recovered/Not Resolved]

NARRATIVE: CASE EVENT DATE: 2012
